FAERS Safety Report 14155816 (Version 2)
Quarter: 2017Q4

REPORT INFORMATION
  Report Type: Spontaneous
  Country: US (occurrence: US)
  Receive Date: 20171103
  Receipt Date: 20171220
  Transmission Date: 20180321
  Serious: Yes (Other)
  Sender: FDA-Public Use
  Company Number: US-BAYER-2017-212496

PATIENT
  Age: 44 Year
  Sex: Female

DRUGS (4)
  1. MIRENA [Suspect]
     Active Substance: LEVONORGESTREL
     Indication: CONTRACEPTION
     Dosage: 20 MCG/24HR, CONT
     Route: 015
     Dates: start: 20171019
  2. MIRENA [Suspect]
     Active Substance: LEVONORGESTREL
     Indication: CONTRACEPTION
  3. MIRENA [Suspect]
     Active Substance: LEVONORGESTREL
     Indication: CONTRACEPTION
     Dosage: 20 MCG/24HR, CONT
     Route: 015
     Dates: end: 20171019
  4. BETADINE [Concomitant]
     Active Substance: POVIDONE-IODINE
     Dosage: UNK
     Dates: start: 20171019, end: 20171019

REACTIONS (5)
  - Procedural pain [None]
  - Device dislocation [None]
  - Genital haemorrhage [None]
  - Procedural haemorrhage [None]
  - Post procedural discomfort [None]

NARRATIVE: CASE EVENT DATE: 20171019
